FAERS Safety Report 4685355-5 (Version None)
Quarter: 2005Q2

REPORT INFORMATION
  Report Type: 
  Country: None (occurrence: None)
  Receive Date: 20050603
  Receipt Date: 20050520
  Transmission Date: 20051028
  Serious: Yes (Death)
  Sender: FDA-Public Use
  Company Number: A-CH2005-09773

PATIENT
  Age: 78 Year
  Sex: 0

DRUGS (1)
  1. TRACLEER [Suspect]
     Dosage: 62.5 MG, BID, ORAL
     Route: 048
     Dates: start: 20030428, end: 20050505

REACTIONS (1)
  - DEATH [None]
